FAERS Safety Report 24333754 (Version 1)
Quarter: 2024Q3

REPORT INFORMATION
  Report Type: Spontaneous
  Country: US (occurrence: US)
  Receive Date: 20240918
  Receipt Date: 20240918
  Transmission Date: 20241016
  Serious: Yes (Other)
  Sender: PIERREL
  Company Number: US-PIERREL S.P.A.-2024PIR00059

PATIENT

DRUGS (1)
  1. ORABLOC [Suspect]
     Active Substance: ARTICAINE HYDROCHLORIDE\EPINEPHRINE BITARTRATE
     Route: 004

REACTIONS (1)
  - Blindness transient [Recovered/Resolved]
